FAERS Safety Report 4949430-X (Version None)
Quarter: 2006Q1

REPORT INFORMATION
  Report Type: 
  Country: None (occurrence: None)
  Receive Date: 20060315
  Receipt Date: 20060303
  Transmission Date: 20060701
  Serious: Yes (Other)
  Sender: FDA-Public Use
  Company Number: 2006032862

PATIENT
  Age: 71 Year
  Sex: Male
  Weight: 102.0593 kg

DRUGS (4)
  1. CELEBREX [Suspect]
     Indication: ARTHRITIS
     Dosage: 200 MG (200 MG, 1 IN 1 D), UNKNOWN
     Route: 065
  2. ACETAMINOPHEN [Suspect]
     Indication: PAIN
     Dosage: UNKNOWN
     Route: 065
     Dates: start: 20060201, end: 20060201
  3. ALL OTHER NON-THERAPEUTIC PRODUCTS (ALL OTHER NON-THERAPEUTIC PRODUCTS [Suspect]
     Indication: ILL-DEFINED DISORDER
     Dosage: UNKNOWN,NOT APPICABLE
  4. SYNVISC (HYALURONATE SODIUM) [Concomitant]

REACTIONS (7)
  - ARTHRITIS [None]
  - BONE DISORDER [None]
  - DRUG INTERACTION [None]
  - LYMPHOMA [None]
  - POSITRON EMISSION TOMOGRAM ABNORMAL [None]
  - RASH GENERALISED [None]
  - RASH MACULAR [None]
